FAERS Safety Report 4733451-6 (Version None)
Quarter: 2005Q3

REPORT INFORMATION
  Report Type: 
  Country: None (occurrence: None)
  Receive Date: 20050801
  Receipt Date: 20050719
  Transmission Date: 20060218
  Serious: Yes (Hospitalization)
  Sender: FDA-Public Use
  Company Number: HQWYE265519JUL05

PATIENT
  Age: 37 Year
  Sex: Female

DRUGS (12)
  1. RAPAMUNE [Suspect]
     Indication: PROPHYLAXIS AGAINST TRANSPLANT REJECTION
     Dosage: SEE IMAGE
     Route: 048
     Dates: start: 20040101, end: 20040101
  2. RAPAMUNE [Suspect]
     Indication: PROPHYLAXIS AGAINST TRANSPLANT REJECTION
     Dosage: SEE IMAGE
     Route: 048
     Dates: start: 20040308, end: 20040101
  3. RAPAMUNE [Suspect]
     Indication: PROPHYLAXIS AGAINST TRANSPLANT REJECTION
     Dosage: SEE IMAGE
     Route: 048
     Dates: start: 20040101, end: 20041201
  4. RAPAMUNE [Suspect]
     Indication: PROPHYLAXIS AGAINST TRANSPLANT REJECTION
     Dosage: SEE IMAGE
     Route: 048
     Dates: end: 20050121
  5. RAPAMUNE [Suspect]
     Indication: PROPHYLAXIS AGAINST TRANSPLANT REJECTION
     Dosage: SEE IMAGE
     Route: 048
     Dates: start: 20041201
  6. PROGRAF [Suspect]
     Indication: PROPHYLAXIS AGAINST TRANSPLANT REJECTION
     Dosage: 6 MG 1X PER 1 DAY, ORAL
     Route: 048
     Dates: start: 20040308, end: 20050121
  7. AMLODIPINE [Concomitant]
  8. COREG [Concomitant]
  9. ROCALTROL [Concomitant]
  10. SORBIFER DURULES                (FERROUS SULFATE), [Concomitant]
  11. ACETYLSALICYLIC ACID 9ACETYLSALICYLIC ACID0 [Concomitant]
  12. FERRUM                 (FERROUS FUMARATE) [Concomitant]

REACTIONS (4)
  - DIABETIC FOOT [None]
  - ENDOCARDITIS [None]
  - GANGRENE [None]
  - LEG AMPUTATION [None]
